FAERS Safety Report 11346874 (Version 1)
Quarter: 2015Q3

REPORT INFORMATION
  Report Type: Spontaneous
  Country: US (occurrence: US)
  Receive Date: 20150803
  Receipt Date: 20150803
  Transmission Date: 20151125
  Serious: Yes (Other)
  Sender: FDA-Public Use
  Company Number: US-ELI_LILLY_AND_COMPANY-US200910007697

PATIENT
  Age: 43 Year
  Sex: Male
  Weight: 87.53 kg

DRUGS (28)
  1. ZYPREXA [Suspect]
     Active Substance: OLANZAPINE
     Dosage: 10 MG, DAILY (1/D)
     Route: 048
     Dates: end: 20050315
  2. NALTREXONE HYDROCHLORIDE. [Concomitant]
     Active Substance: NALTREXONE HYDROCHLORIDE
     Dosage: 50 MG, DAILY (1/D)
  3. DIVALPROEX [Concomitant]
     Active Substance: DIVALPROEX SODIUM
     Dosage: 1500 MG, UNK
  4. SERTRALINE [Concomitant]
     Active Substance: SERTRALINE HYDROCHLORIDE
     Indication: DEPRESSION
     Dosage: 25 MG, DAILY (1/D)
  5. LOVASTATIN. [Concomitant]
     Active Substance: LOVASTATIN
     Indication: BLOOD CHOLESTEROL INCREASED
     Dosage: 20 MG, EACH EVENING
  6. ETHANOL [Concomitant]
     Active Substance: ALCOHOL
  7. ZYPREXA [Suspect]
     Active Substance: OLANZAPINE
     Dosage: 5 MG, DAILY (1/D)
     Route: 048
     Dates: start: 200307
  8. HYDROCHLOROTHIAZIDE. [Concomitant]
     Active Substance: HYDROCHLOROTHIAZIDE
     Indication: BLOOD PRESSURE INCREASED
     Dosage: 12.5 MG, UNK
  9. VENLAFAXINE [Concomitant]
     Active Substance: VENLAFAXINE HYDROCHLORIDE
     Indication: DEPRESSION
     Dosage: 37.5 MG, DAILY (1/D)
  10. GEMFIBROZIL. [Concomitant]
     Active Substance: GEMFIBROZIL
     Dosage: 600 MG, 2/D
  11. DISULFIRAM. [Concomitant]
     Active Substance: DISULFIRAM
     Dosage: 250 MG, DAILY (1/D)
  12. DIVALPROEX [Concomitant]
     Active Substance: DIVALPROEX SODIUM
     Dosage: 500 MG, DAILY (1/D)
  13. SERTRALINE [Concomitant]
     Active Substance: SERTRALINE HYDROCHLORIDE
     Dosage: 50 MG, DAILY (1/D)
  14. VENLAFAXINE [Concomitant]
     Active Substance: VENLAFAXINE HYDROCHLORIDE
     Dosage: 75 MG, DAILY (1/D)
  15. LEVOTHYROXINE. [Concomitant]
     Active Substance: LEVOTHYROXINE
     Indication: THYROID DISORDER
     Dosage: 0.025 MG, EACH MORNING
  16. COCAINE [Concomitant]
     Active Substance: COCAINE
  17. QUETIAPINE FUMARATE. [Concomitant]
     Active Substance: QUETIAPINE FUMARATE
     Dosage: 25 MG, EACH EVENING
  18. LAMOTRIGINE. [Concomitant]
     Active Substance: LAMOTRIGINE
     Dosage: 25 MG, DAILY (1/D)
  19. BUPROPION HCL [Concomitant]
     Active Substance: BUPROPION HYDROCHLORIDE
     Dosage: 150 MG, 2/D
  20. TRIFLUOPERAZINE HYDROCHLORIDE. [Concomitant]
     Active Substance: TRIFLUOPERAZINE HYDROCHLORIDE
     Dosage: 5 MG, EACH EVENING
  21. ZYPREXA [Suspect]
     Active Substance: OLANZAPINE
     Indication: AFFECTIVE DISORDER
     Dosage: 2.5 MG, DAILY (1/D)
     Route: 048
     Dates: start: 19990212, end: 19990222
  22. ZYPREXA [Suspect]
     Active Substance: OLANZAPINE
     Dosage: 5 MG, DAILY (1/D)
     Route: 048
     Dates: start: 19990223, end: 19990426
  23. CARBAMAZEPINE. [Concomitant]
     Active Substance: CARBAMAZEPINE
     Dosage: 200 MG, 3/D
  24. MARIJUANA [Concomitant]
     Active Substance: CANNABIS SATIVA SUBSP. INDICA TOP
  25. ZYPREXA [Suspect]
     Active Substance: OLANZAPINE
     Dosage: 2.5 MG, DAILY (1/D)
     Route: 048
     Dates: start: 19990427, end: 20030718
  26. DIVALPROEX [Concomitant]
     Active Substance: DIVALPROEX SODIUM
     Dosage: 250 MG, 3/D
  27. LAMOTRIGINE. [Concomitant]
     Active Substance: LAMOTRIGINE
     Dosage: 25 MG, 2/D
  28. BUPROPION HCL [Concomitant]
     Active Substance: BUPROPION HYDROCHLORIDE
     Indication: DEPRESSION
     Dosage: 200 MG, DAILY (1/D)

REACTIONS (6)
  - Hunger [Unknown]
  - Polyuria [Unknown]
  - Polydipsia [Unknown]
  - Weight increased [Unknown]
  - Sedation [Unknown]
  - Blood glucose abnormal [Unknown]

NARRATIVE: CASE EVENT DATE: 19990415
